FAERS Safety Report 6666946-9 (Version None)
Quarter: 2010Q2

REPORT INFORMATION
  Report Type: 
  Country: None (occurrence: None)
  Receive Date: 20100405
  Receipt Date: 20100326
  Transmission Date: 20101027
  Serious: Yes (Other)
  Sender: FDA-Public Use
  Company Number: PHHO2010ES04732

PATIENT
  Sex: Female
  Weight: 79.9 kg

DRUGS (2)
  1. AFINITOR [Suspect]
     Indication: METASTATIC RENAL CELL CARCINOMA
     Dosage: UNK
     Route: 048
     Dates: start: 20090923, end: 20100325
  2. AVASTIN COMP-AVA+ [Suspect]
     Indication: METASTATIC RENAL CELL CARCINOMA
     Dosage: UNK
     Route: 042
     Dates: start: 20090923, end: 20100224

REACTIONS (2)
  - NEPHROTIC SYNDROME [None]
  - PROTEINURIA [None]
